FAERS Safety Report 19662176 (Version 2)
Quarter: 2022Q3

REPORT INFORMATION
  Report Type: Report from Study
  Country: BR (occurrence: BR)
  Receive Date: 20210805
  Receipt Date: 20220715
  Transmission Date: 20221027
  Serious: Yes (Death, Hospitalization, Other)
  Sender: FDA-Public Use
  Company Number: BR-NOVARTISPH-NVSC2021BR172443

PATIENT
  Sex: Male

DRUGS (2)
  1. LOSARTAN [Suspect]
     Active Substance: LOSARTAN
     Indication: Product used for unknown indication
     Dosage: UNK
     Route: 065
     Dates: start: 2016, end: 20210721
  2. LOSARTAN [Suspect]
     Active Substance: LOSARTAN
     Dosage: UNK, (FOR A SHORT TIME)
     Route: 065

REACTIONS (8)
  - Death [Fatal]
  - Arrhythmia [Unknown]
  - Hypertension [Unknown]
  - Heart rate irregular [Unknown]
  - Cardiomyopathy [Recovering/Resolving]
  - Asthenia [Recovering/Resolving]
  - Dizziness [Recovering/Resolving]
  - Nausea [Recovering/Resolving]

NARRATIVE: CASE EVENT DATE: 20160101
